FAERS Safety Report 15713333 (Version 3)
Quarter: 2018Q4

REPORT INFORMATION
  Report Type: Report from Study
  Country: None (occurrence: US)
  Receive Date: 20181212
  Receipt Date: 20181220
  Transmission Date: 20190205
  Serious: Yes (Hospitalization, Other)
  Sender: FDA-Public Use
  Company Number: US-ABBVIE-18S-163-2582245-00

PATIENT
  Age: 70 Year
  Sex: Female
  Weight: 63.2 kg

DRUGS (9)
  1. SYNTHROID [Suspect]
     Active Substance: LEVOTHYROXINE SODIUM
     Indication: PRODUCT USED FOR UNKNOWN INDICATION
     Route: 048
     Dates: start: 20180918, end: 20181106
  2. CALCIUM [Concomitant]
     Active Substance: CALCIUM
     Indication: PRODUCT USED FOR UNKNOWN INDICATION
  3. LEVOTHYROXINE. [Suspect]
     Active Substance: LEVOTHYROXINE
     Indication: PRODUCT USED FOR UNKNOWN INDICATION
     Dosage: MANUFACTURED BY MYLAN
     Route: 048
     Dates: start: 201503, end: 20180917
  4. LEVOTHYROXINE. [Suspect]
     Active Substance: LEVOTHYROXINE
     Dosage: MANUFACTURED BY MYLAN
     Route: 048
     Dates: start: 20181107
  5. VITAMIN D3 [Concomitant]
     Active Substance: CHOLECALCIFEROL
     Indication: PRODUCT USED FOR UNKNOWN INDICATION
  6. SYNTHROID [Suspect]
     Active Substance: LEVOTHYROXINE SODIUM
     Route: 048
  7. TERBINAFINE CIPLA [Suspect]
     Active Substance: TERBINAFINE
     Indication: NAIL DISORDER
     Dosage: MANUFACTURED BY CIPLA
     Route: 065
  8. TERBINAFINE BRECKENRIDGE [Suspect]
     Active Substance: TERBINAFINE
     Indication: NAIL DISORDER
     Route: 048
  9. SYNTHROID [Suspect]
     Active Substance: LEVOTHYROXINE SODIUM
     Route: 048

REACTIONS (12)
  - Nail disorder [Unknown]
  - Fungal skin infection [Recovering/Resolving]
  - Nervousness [Recovered/Resolved]
  - Temperature intolerance [Recovered/Resolved]
  - Tremor [Recovered/Resolved]
  - Tremor [Recovered/Resolved]
  - Fungaemia [Unknown]
  - Aspartate aminotransferase increased [Unknown]
  - Hot flush [Recovered/Resolved]
  - Pruritus [Recovered/Resolved]
  - Blood bilirubin increased [Not Recovered/Not Resolved]
  - Hepatic enzyme increased [Recovering/Resolving]

NARRATIVE: CASE EVENT DATE: 2018
